FAERS Safety Report 5981891-X (Version None)
Quarter: 2008Q4

REPORT INFORMATION
  Report Type: 
  Country: None (occurrence: None)
  Receive Date: 20081205
  Receipt Date: 20081202
  Transmission Date: 20090506
  Serious: Yes (Life-Threatening)
  Sender: FDA-Public Use
  Company Number: JP-MERCK-0810USA04676

PATIENT
  Age: 47 Year
  Sex: Female

DRUGS (2)
  1. TIMOPTOL-XE [Suspect]
     Indication: NORMAL TENSION GLAUCOMA
     Route: 047
     Dates: start: 20081003, end: 20081021
  2. XALATAN [Concomitant]
     Indication: NORMAL TENSION GLAUCOMA
     Route: 047
     Dates: start: 20081002, end: 20081022

REACTIONS (6)
  - BACK PAIN [None]
  - BLOOD PRESSURE INCREASED [None]
  - BRADYCARDIA [None]
  - CHEST PAIN [None]
  - DYSPNOEA [None]
  - HEADACHE [None]
